FAERS Safety Report 7246990 (Version 2)
Quarter: 2014Q1

REPORT INFORMATION
  Report Type: Spontaneous
  Country: US (occurrence: US)
  Receive Date: 20100115
  Receipt Date: 20140121
  Transmission Date: 20141002
  Serious: No
  Sender: FDA-Public Use
  Company Number: US-JNJFOC-20100101975

PATIENT
  Age: 57 Year
  Sex: Male
  Weight: 94.8 kg

DRUGS (7)
  1. SANDOZ FENTANYL TRANSDERMAL SYSTEM [Suspect]
     Indication: PAIN
     Route: 062
     Dates: start: 20091229
  2. ADVAIR [Concomitant]
     Indication: ASTHMA
     Dates: start: 2005
  3. ALBUTEROL [Concomitant]
     Indication: ASTHMA
     Route: 055
     Dates: start: 2005
  4. NASACORT [Concomitant]
     Indication: ASTHMA
     Dates: start: 2005
  5. KLONOPIN [Concomitant]
     Indication: PANIC ATTACK
     Route: 048
     Dates: start: 2005
  6. PRILOSEC [Concomitant]
     Indication: GASTROOESOPHAGEAL REFLUX DISEASE
     Route: 048
     Dates: start: 2005
  7. SINGULAIR [Concomitant]
     Indication: ASTHMA
     Route: 048
     Dates: start: 2005

REACTIONS (3)
  - Therapeutic response decreased [Recovered/Resolved]
  - Poor quality drug administered [Recovered/Resolved]
  - Product adhesion issue [Unknown]
